FAERS Safety Report 21033934 (Version 2)
Quarter: 2022Q3

REPORT INFORMATION
  Report Type: Spontaneous
  Country: CN (occurrence: CN)
  Receive Date: 20220701
  Receipt Date: 20220713
  Transmission Date: 20221027
  Serious: Yes (Other)
  Sender: FDA-Public Use
  Company Number: CN-PFIZER INC-PV202200011575

PATIENT
  Age: 18 Year
  Sex: Female
  Weight: 44 kg

DRUGS (2)
  1. METHOTREXATE SODIUM [Suspect]
     Active Substance: METHOTREXATE SODIUM
     Indication: Gestational trophoblastic tumour
     Dosage: 0.015 G, 1X/DAY
     Route: 030
     Dates: start: 20220521, end: 20220525
  2. METHOTREXATE SODIUM [Suspect]
     Active Substance: METHOTREXATE SODIUM
     Indication: Metastases to lung

REACTIONS (10)
  - Rash [Not Recovered/Not Resolved]
  - Pruritus [Unknown]
  - Mouth ulceration [Recovering/Resolving]
  - Vaginal haemorrhage [Unknown]
  - Aspartate aminotransferase increased [Unknown]
  - Decreased appetite [Unknown]
  - Abdominal pain [Unknown]
  - Hyperaemia [Unknown]
  - Heavy menstrual bleeding [Unknown]
  - Off label use [Unknown]

NARRATIVE: CASE EVENT DATE: 20220521
